FAERS Safety Report 5831078-6 (Version None)
Quarter: 2008Q3

REPORT INFORMATION
  Report Type: 
  Country: None (occurrence: None)
  Receive Date: 20080801
  Receipt Date: 20080721
  Transmission Date: 20090109
  Serious: Yes (Other)
  Sender: FDA-Public Use
  Company Number: GB-ELI_LILLY_AND_COMPANY-GB200807005968

PATIENT
  Age: 11 Year
  Sex: Male

DRUGS (6)
  1. STRATTERA [Suspect]
     Indication: ATTENTION DEFICIT/HYPERACTIVITY DISORDER
     Dosage: UNK, UNKNOWN
     Route: 065
  2. RISPERIDONE [Concomitant]
     Dosage: 0.25 ML, UNKNOWN
     Route: 065
  3. RISPERIDONE [Concomitant]
     Dosage: 0.5 ML, UNKNOWN
     Route: 065
  4. RISPERIDONE [Concomitant]
     Dosage: 0.1 ML, UNKNOWN
     Route: 065
  5. RISPERIDONE [Concomitant]
     Dosage: 0.1 ML, EVERY 2 WEEKS
     Route: 065
  6. RISPERIDONE [Concomitant]
     Dosage: 0.2 ML, UNKNOWN
     Route: 065

REACTIONS (4)
  - ABNORMAL BEHAVIOUR [None]
  - AGGRESSION [None]
  - DRUG INTERACTION [None]
  - SPONTANEOUS PENILE ERECTION [None]
